FAERS Safety Report 4287601-9 (Version None)
Quarter: 2004Q1

REPORT INFORMATION
  Report Type: 
  Country: None (occurrence: None)
  Receive Date: 20040209
  Receipt Date: 20030806
  Transmission Date: 20041129
  Serious: No
  Sender: FDA-Public Use
  Company Number: US-GLAXOSMITHKLINE-A0419780A

PATIENT
  Age: 38 Year
  Sex: Male

DRUGS (6)
  1. PAXIL CR [Suspect]
     Dosage: 12.5MG PER DAY
     Route: 048
     Dates: start: 20030701
  2. ALLEGRA [Concomitant]
  3. SINGULAIR [Concomitant]
  4. PROVENTIL [Concomitant]
  5. FLONASE [Concomitant]
  6. LAMICTAL [Concomitant]

REACTIONS (1)
  - SOMNOLENCE [None]
